FAERS Safety Report 12327020 (Version 1)
Quarter: 2016Q2

REPORT INFORMATION
  Report Type: Spontaneous
  Country: US (occurrence: None)
  Receive Date: 20160502
  Receipt Date: 20160502
  Transmission Date: 20160815
  Serious: Yes (Hospitalization)
  Sender: FDA-Public Use
  Company Number: None

PATIENT
  Age: 69 Year
  Sex: Female

DRUGS (1)
  1. TASIGNA [Suspect]
     Active Substance: NILOTINIB
     Dosage: 150MG 2 BID ORAL
     Route: 048

REACTIONS (2)
  - Muscle atrophy [None]
  - Muscular weakness [None]

NARRATIVE: CASE EVENT DATE: 20140401
